FAERS Safety Report 6153460-2 (Version None)
Quarter: 2009Q2

REPORT INFORMATION
  Report Type: 
  Country: None (occurrence: None)
  Receive Date: 20090409
  Receipt Date: 20090409
  Transmission Date: 20091009
  Serious: Yes (Life-Threatening)
  Sender: FDA-Public Use
  Company Number: None

PATIENT
  Age: 27 Year
  Sex: Male
  Weight: 90.7194 kg

DRUGS (2)
  1. PAROXETINE HCL [Suspect]
     Indication: ANXIETY
     Dosage: 40 MG 1X DAILY PO
     Route: 048
     Dates: start: 20071101, end: 20080101
  2. PAROXETINE HCL [Suspect]
     Indication: PANIC ATTACK
     Dosage: 40 MG 1X DAILY PO
     Route: 048
     Dates: start: 20071101, end: 20080101

REACTIONS (6)
  - CHILLS [None]
  - DRUG WITHDRAWAL SYNDROME [None]
  - NAUSEA [None]
  - PANIC ATTACK [None]
  - SUICIDAL IDEATION [None]
  - THERAPEUTIC RESPONSE UNEXPECTED WITH DRUG SUBSTITUTION [None]
